FAERS Safety Report 4986114-6 (Version None)
Quarter: 2006Q2

REPORT INFORMATION
  Report Type: 
  Country: None (occurrence: None)
  Receive Date: 20060428
  Receipt Date: 20060421
  Transmission Date: 20061013
  Serious: Yes (Death)
  Sender: FDA-Public Use
  Company Number: US-SANOFI-SYNTHELABO-A03200602557

PATIENT
  Age: 87 Year
  Sex: Male

DRUGS (8)
  1. PLAVIX [Suspect]
     Indication: ANTIPLATELET THERAPY
     Route: 048
  2. LASIX [Concomitant]
     Dosage: UNK
     Route: 065
  3. NEURONTIN [Concomitant]
     Dosage: UNK
     Route: 065
  4. QUINAPRIL [Concomitant]
     Dosage: UNK
     Route: 065
  5. QUIXIN [Concomitant]
     Dosage: UNK
     Route: 065
  6. METOCLOPRAMIDE [Concomitant]
     Dosage: UNK
     Route: 065
  7. TOPROL-XL [Concomitant]
     Dosage: UNK
     Route: 065
  8. ABACAVIR [Concomitant]
     Dosage: UNK
     Route: 065

REACTIONS (1)
  - CARDIAC FAILURE [None]
